FAERS Safety Report 5733142-9 (Version None)
Quarter: 2008Q2

REPORT INFORMATION
  Report Type: 
  Country: None (occurrence: None)
  Receive Date: 20080507
  Receipt Date: 20080501
  Transmission Date: 20081010
  Serious: Yes (Hospitalization)
  Sender: FDA-Public Use
  Company Number: OMPQ-NO-0805S-0298

PATIENT
  Age: 82 Year
  Sex: Male

DRUGS (2)
  1. OMNIPAQUE 140 [Suspect]
     Indication: DRUG USE FOR UNKNOWN INDICATION
     Dosage: 75 ML, SINGLE DOSE, I.V.
     Route: 042
     Dates: start: 20080409, end: 20080409
  2. OMNIPAQUE 140 [Suspect]

REACTIONS (5)
  - NAUSEA [None]
  - PALLOR [None]
  - PULSE ABSENT [None]
  - RETCHING [None]
  - UNRESPONSIVE TO STIMULI [None]
